FAERS Safety Report 5324354-7 (Version None)
Quarter: 2007Q2

REPORT INFORMATION
  Report Type: 
  Country: None (occurrence: None)
  Receive Date: 20070514
  Receipt Date: 20070502
  Transmission Date: 20071010
  Serious: Yes (Other)
  Sender: FDA-Public Use
  Company Number: US-PFIZER INC-2007036958

PATIENT

DRUGS (3)
  1. NEURONTIN [Suspect]
     Indication: NECK PAIN
  2. NEURONTIN [Suspect]
     Indication: MUSCULOSKELETAL PAIN
  3. NEURONTIN [Suspect]
     Indication: HYPOAESTHESIA

REACTIONS (3)
  - ANXIETY [None]
  - BLOOD PRESSURE INCREASED [None]
  - PARANOIA [None]
